FAERS Safety Report 9809880 (Version 2)
Quarter: 2014Q4

REPORT INFORMATION
  Report Type: Spontaneous
  Country: US (occurrence: US)
  Receive Date: 20140110
  Receipt Date: 20141229
  Transmission Date: 20150529
  Serious: Yes (Hospitalization)
  Sender: FDA-Public Use
  Company Number: US-SANOFI-AVENTIS-2013SA067359

PATIENT
  Age: 67 Year
  Sex: Male
  Weight: 155 kg

DRUGS (11)
  1. ASPIRIN. [Concomitant]
     Active Substance: ASPIRIN
     Dates: start: 20020101
  2. PLAVIX [Suspect]
     Active Substance: CLOPIDOGREL BISULFATE
     Indication: STENT PLACEMENT
     Route: 065
     Dates: start: 20110418, end: 20120829
  3. VITAMIN C [Concomitant]
     Active Substance: ASCORBIC ACID
  4. MICRO-K [Concomitant]
     Active Substance: POTASSIUM CHLORIDE
  5. TORSEMIDE. [Concomitant]
     Active Substance: TORSEMIDE
  6. ALLOPURINOL. [Concomitant]
     Active Substance: ALLOPURINOL
  7. NICARDIPINE [Concomitant]
     Active Substance: NICARDIPINE
  8. ASPIRIN. [Concomitant]
     Active Substance: ASPIRIN
  9. SIMVASTATIN. [Concomitant]
     Active Substance: SIMVASTATIN
  10. CAPTOPRIL. [Concomitant]
     Active Substance: CAPTOPRIL
  11. VITAMIN D [Concomitant]
     Active Substance: CHOLECALCIFEROL

REACTIONS (2)
  - Rectal haemorrhage [Unknown]
  - Gastrointestinal haemorrhage [Unknown]

NARRATIVE: CASE EVENT DATE: 20120829
